FAERS Safety Report 9252196 (Version 2)
Quarter: 2013Q2

REPORT INFORMATION
  Report Type: Spontaneous
  Country: US (occurrence: US)
  Receive Date: 20130424
  Receipt Date: 20130424
  Transmission Date: 20140414
  Serious: Yes (Other)
  Sender: FDA-Public Use
  Company Number: US-BAYER-2013-040909

PATIENT
  Age: 82 Year
  Sex: Female
  Weight: 74.83 kg

DRUGS (1)
  1. NEO-SYNEPHRINE NIGHTTIME 12-HOUR SPRAY [Suspect]
     Indication: NASAL CONGESTION
     Dosage: 5 DOSE, QD
     Route: 045
     Dates: start: 1993

REACTIONS (5)
  - Drug dependence [None]
  - Nasal dryness [None]
  - Incorrect drug administration duration [None]
  - Incorrect dose administered [None]
  - Drug abuser [None]
